FAERS Safety Report 22333673 (Version 1)
Quarter: 2023Q2

REPORT INFORMATION
  Report Type: Spontaneous
  Country: US (occurrence: None)
  Receive Date: 20230517
  Receipt Date: 20230517
  Transmission Date: 20230722
  Serious: No
  Sender: FDA-Public Use
  Company Number: 2023A104288

PATIENT
  Age: 65 Year

DRUGS (1)
  1. PULMICORT FLEXHALER [Suspect]
     Active Substance: BUDESONIDE
     Indication: Dyspnoea
     Route: 055
     Dates: start: 2023

REACTIONS (7)
  - Pulmonary congestion [Unknown]
  - Fall [Unknown]
  - Product use issue [Unknown]
  - Prescription drug used without a prescription [Unknown]
  - Product use issue [Unknown]
  - Device use issue [Unknown]
  - Device delivery system issue [Unknown]

NARRATIVE: CASE EVENT DATE: 20230101
